FAERS Safety Report 15753176 (Version 2)
Quarter: 2019Q1

REPORT INFORMATION
  Report Type: Spontaneous
  Country: JP (occurrence: JP)
  Receive Date: 20181222
  Receipt Date: 20190208
  Transmission Date: 20190417
  Serious: Yes (Hospitalization)
  Sender: FDA-Public Use
  Company Number: JP-ASTELLAS-2018JP020899AA

PATIENT
  Age: 82 Year
  Sex: Male
  Weight: 58 kg

DRUGS (6)
  1. XTANDI [Suspect]
     Active Substance: ENZALUTAMIDE
     Indication: HORMONE-REFRACTORY PROSTATE CANCER
     Route: 048
     Dates: start: 20180115
  2. MOHRUS [Concomitant]
     Active Substance: KETOPROFEN
     Indication: HORMONE-REFRACTORY PROSTATE CANCER
     Route: 061
     Dates: start: 20180604
  3. NALDEMEDINE [Concomitant]
     Active Substance: NALDEMEDINE
     Indication: HORMONE-REFRACTORY PROSTATE CANCER
     Dosage: 0.2 MG, ONCE DAILY
     Route: 048
     Dates: start: 20180806
  4. MAGMITT [Concomitant]
     Active Substance: MAGNESIUM OXIDE
     Indication: HORMONE-REFRACTORY PROSTATE CANCER
     Route: 048
     Dates: start: 20180806
  5. OXYCONTIN [Concomitant]
     Active Substance: OXYCODONE HYDROCHLORIDE
     Indication: HORMONE-REFRACTORY PROSTATE CANCER
     Route: 048
     Dates: start: 20170123
  6. OXINORM                            /00045603/ [Concomitant]
     Active Substance: OXYCODONE HYDROCHLORIDE
     Indication: HORMONE-REFRACTORY PROSTATE CANCER
     Route: 048
     Dates: start: 20180806

REACTIONS (2)
  - Prescribed underdose [Unknown]
  - Anaemia [Recovering/Resolving]

NARRATIVE: CASE EVENT DATE: 20180115
